FAERS Safety Report 9734199 (Version 2)
Quarter: 2014Q1

REPORT INFORMATION
  Report Type: Spontaneous
  Country: US (occurrence: US)
  Receive Date: 20131205
  Receipt Date: 20140225
  Transmission Date: 20141002
  Serious: Yes (Other)
  Sender: FDA-Public Use
  Company Number: US-TEVA-448519USA

PATIENT
  Age: 18 Year
  Sex: Female

DRUGS (2)
  1. PARAGARD 380A [Suspect]
     Indication: CONTRACEPTION
     Route: 015
     Dates: start: 20131109, end: 20131109
  2. PARAGARD 380A [Suspect]
     Route: 015
     Dates: start: 20131220

REACTIONS (3)
  - Postpartum haemorrhage [Recovered/Resolved]
  - Thrombosis [Recovered/Resolved]
  - Syncope [Recovered/Resolved]
